FAERS Safety Report 8896907 (Version 1)
Quarter: 2012Q4

REPORT INFORMATION
  Report Type: Spontaneous
  Country: US (occurrence: None)
  Receive Date: 20121105
  Receipt Date: 20121105
  Transmission Date: 20130627
  Serious: Yes (Other)
  Sender: FDA-Public Use
  Company Number: IPC201210-000553

PATIENT
  Age: 38 Year
  Sex: Female
  Weight: 58.06 kg

DRUGS (3)
  1. HYDROXYCHLOROQUINE SULFATE [Suspect]
     Dates: start: 1994
  2. AMITRIPTYLINE [Concomitant]
  3. VITAMIN D [Concomitant]

REACTIONS (1)
  - Coeliac disease [None]
